FAERS Safety Report 8151423-9 (Version None)
Quarter: 2012Q1

REPORT INFORMATION
  Report Type: 
  Country: None (occurrence: None)
  Receive Date: 20120220
  Receipt Date: 20120216
  Transmission Date: 20120608
  Serious: Yes (Hospitalization)
  Sender: FDA-Public Use
  Company Number: SE-ROCHE-1037531

PATIENT

DRUGS (2)
  1. IBUPROFEN TABLETS [Suspect]
     Indication: PRODUCT USED FOR UNKNOWN INDICATION
  2. AVASTIN [Suspect]
     Indication: COLORECTAL CANCER METASTATIC
     Dosage: DATE OF LAST DOSE PRIOR TO SAE: 25 JAN 2012
     Dates: start: 20110406

REACTIONS (1)
  - BLOOD CREATININE INCREASED [None]
